FAERS Safety Report 4364250-5 (Version None)
Quarter: 2004Q2

REPORT INFORMATION
  Report Type: 
  Country: None (occurrence: None)
  Receive Date: 20040525
  Receipt Date: 20020516
  Transmission Date: 20050107
  Serious: Yes (Hospitalization, Disabling, Other)
  Sender: FDA-Public Use
  Company Number: US-MERCK-0205USA02012

PATIENT
  Age: 46 Year
  Sex: Female

DRUGS (16)
  1. FIORICET TABLETS [Concomitant]
     Indication: MIGRAINE
     Route: 065
  2. VICODIN [Concomitant]
     Route: 065
  3. ECOTRIN [Concomitant]
     Route: 065
  4. PLAVIX [Suspect]
     Route: 065
     Dates: end: 20000901
  5. CARDIZEM [Concomitant]
     Route: 065
     Dates: end: 20030306
  6. VASOTEC [Concomitant]
     Route: 048
     Dates: end: 20030306
  7. HYDROCHLOROTHIAZIDE [Concomitant]
     Route: 065
  8. VIOXX [Suspect]
     Indication: BACK PAIN
     Route: 048
     Dates: start: 20000101
  9. VIOXX [Suspect]
     Route: 048
     Dates: start: 20000921
  10. VIOXX [Suspect]
     Route: 048
     Dates: start: 20000901, end: 20000901
  11. VIOXX [Suspect]
     Route: 048
     Dates: start: 20000718
  12. VIOXX [Suspect]
     Indication: NECK PAIN
     Route: 048
     Dates: start: 20000101
  13. VIOXX [Suspect]
     Route: 048
     Dates: start: 20000921
  14. VIOXX [Suspect]
     Route: 048
     Dates: start: 20000901, end: 20000901
  15. VIOXX [Suspect]
     Route: 048
     Dates: start: 20000718
  16. CALAN [Concomitant]
     Route: 065

REACTIONS (64)
  - ACUTE CORONARY SYNDROME [None]
  - ANAEMIA [None]
  - ANGINA UNSTABLE [None]
  - ANXIETY [None]
  - ARTHRALGIA [None]
  - BACK INJURY [None]
  - BACK PAIN [None]
  - BLOOD PRESSURE INADEQUATELY CONTROLLED [None]
  - BRONCHITIS ACUTE [None]
  - CONDITION AGGRAVATED [None]
  - CONJUNCTIVAL HAEMORRHAGE [None]
  - CONTUSION [None]
  - CORONARY ARTERY ATHEROSCLEROSIS [None]
  - CORONARY ARTERY DISEASE [None]
  - CORONARY ARTERY OCCLUSION [None]
  - CORONARY ARTERY RESTENOSIS [None]
  - CORONARY ARTERY STENOSIS [None]
  - CORONARY OSTIAL STENOSIS [None]
  - DEPRESSION [None]
  - DIARRHOEA [None]
  - DIASTOLIC DYSFUNCTION [None]
  - DIZZINESS [None]
  - DUODENITIS [None]
  - DYSPNOEA [None]
  - FALL [None]
  - FATIGUE [None]
  - FEELING HOT AND COLD [None]
  - FIBROMA [None]
  - GASTRITIS [None]
  - HAEMATOCHEZIA [None]
  - HEADACHE [None]
  - HEART RATE IRREGULAR [None]
  - HYPERTENSION [None]
  - HYPOKALAEMIA [None]
  - HYPOTENSION [None]
  - JOINT SPRAIN [None]
  - LARYNGITIS [None]
  - LOSS OF CONSCIOUSNESS [None]
  - MENOPAUSAL SYMPTOMS [None]
  - MIGRAINE [None]
  - MITRAL VALVE INCOMPETENCE [None]
  - MYOCARDIAL INFARCTION [None]
  - MYOCARDIAL ISCHAEMIA [None]
  - NAUSEA [None]
  - ORTHOSTATIC HYPOTENSION [None]
  - PALPITATIONS [None]
  - PARAESTHESIA [None]
  - PELVIC PERITONEAL ADHESIONS [None]
  - PHAEOCHROMOCYTOMA [None]
  - PHLEBOTHROMBOSIS [None]
  - PHOTOPSIA [None]
  - RESPIRATORY FAILURE [None]
  - RHINITIS SEASONAL [None]
  - SCAR [None]
  - SINUS POLYP [None]
  - STENT OCCLUSION [None]
  - SUPRAVENTRICULAR EXTRASYSTOLES [None]
  - SYNCOPE [None]
  - TEMPERATURE INTOLERANCE [None]
  - THROMBOPHLEBITIS SUPERFICIAL [None]
  - TRICUSPID VALVE INCOMPETENCE [None]
  - UPPER GASTROINTESTINAL HAEMORRHAGE [None]
  - VENTRICULAR EXTRASYSTOLES [None]
  - VISION BLURRED [None]
